FAERS Safety Report 20589498 (Version 1)
Quarter: 2022Q1

REPORT INFORMATION
  Report Type: Spontaneous
  Country: US (occurrence: None)
  Receive Date: 20220314
  Receipt Date: 20220314
  Transmission Date: 20220423
  Serious: No
  Sender: FDA-Public Use
  Company Number: 2022A086398

PATIENT
  Sex: Female
  Weight: 61.7 kg

DRUGS (6)
  1. BYDUREON BCISE [Suspect]
     Active Substance: EXENATIDE
     Indication: Diabetes mellitus
     Route: 058
  2. BYDUREON BCISE [Suspect]
     Active Substance: EXENATIDE
     Indication: Diabetes mellitus
     Route: 058
  3. AMLODIPINE [Concomitant]
     Active Substance: AMLODIPINE BESYLATE
     Route: 065
  4. LISINOPRIL [Concomitant]
     Active Substance: LISINOPRIL
     Route: 065
  5. METFORMIN [Concomitant]
     Active Substance: METFORMIN HYDROCHLORIDE
     Route: 065
  6. GLYBURIDE [Concomitant]
     Active Substance: GLYBURIDE
     Route: 065

REACTIONS (6)
  - Injection site haemorrhage [Unknown]
  - Blood pressure abnormal [Unknown]
  - Injection site pain [Unknown]
  - Incorrect dose administered by product [Unknown]
  - Device malfunction [Unknown]
  - Needle issue [Unknown]
